FAERS Safety Report 4786675-6 (Version None)
Quarter: 2005Q4

REPORT INFORMATION
  Report Type: 
  Country: None (occurrence: None)
  Receive Date: 20051003
  Receipt Date: 20051003
  Transmission Date: 20060501
  Serious: Yes (Life-Threatening, Hospitalization, Other)
  Sender: FDA-Public Use
  Company Number: None

PATIENT
  Sex: Male
  Weight: 13 kg

DRUGS (3)
  1. PAXIL [Suspect]
     Indication: DEPRESSION
     Dosage: 1X DAILY
  2. PAXIL [Suspect]
     Indication: DRUG WITHDRAWAL SYNDROME
     Dosage: 1X DAILY
  3. SYNTHROID [Suspect]
     Indication: HYPOTHYROIDISM
     Dosage: 0.05 MG UP TO 0.15

REACTIONS (9)
  - CRANIOSYNOSTOSIS [None]
  - DRUG EXPOSURE DURING PREGNANCY [None]
  - DRUG WITHDRAWAL SYNDROME NEONATAL [None]
  - DYSPNOEA [None]
  - HYPERACUSIS [None]
  - INFANTILE APNOEIC ATTACK [None]
  - IRRITABILITY [None]
  - NEONATAL DISORDER [None]
  - PIERRE ROBIN SYNDROME [None]
